FAERS Safety Report 5775514-2 (Version None)
Quarter: 2008Q2

REPORT INFORMATION
  Report Type: 
  Country: None (occurrence: None)
  Receive Date: 20080617
  Receipt Date: 20080612
  Transmission Date: 20081010
  Serious: Yes (Life-Threatening, Hospitalization, Other)
  Sender: FDA-Public Use
  Company Number: FR-BRISTOL-MYERS SQUIBB COMPANY-14229439

PATIENT
  Age: 67 Year
  Sex: Female

DRUGS (11)
  1. GLUCOVANCE [Suspect]
     Indication: TYPE 2 DIABETES MELLITUS
     Dosage: INTERRUPTED ON 29-APR-2008 AND REINTRODUCED AFTER 4 DAYS.
     Route: 048
  2. ODRIK [Suspect]
     Indication: CARDIAC FAILURE
     Dosage: FORMULATION:CAPSULE
     Route: 048
     Dates: start: 20080401, end: 20080429
  3. ALDACTONE [Suspect]
     Indication: CARDIAC FAILURE
     Dates: start: 20080401, end: 20080429
  4. DIGOXIN [Suspect]
  5. LASILIX [Concomitant]
  6. POTASSIUM CHLORIDE [Concomitant]
  7. ZOCOR [Concomitant]
  8. PREVISCAN [Concomitant]
  9. CARDENSIEL [Concomitant]
  10. LEVOTHYROXINE SODIUM [Concomitant]
  11. STRUCTUM [Concomitant]

REACTIONS (3)
  - LACTIC ACIDOSIS [None]
  - OVERDOSE [None]
  - RENAL FAILURE ACUTE [None]
